FAERS Safety Report 10397278 (Version 1)
Quarter: 2014Q3

REPORT INFORMATION
  Report Type: Spontaneous
  Country: NL (occurrence: NL)
  Receive Date: 20140820
  Receipt Date: 20140820
  Transmission Date: 20150326
  Serious: Yes (Life-Threatening)
  Sender: FDA-Public Use
  Company Number: PHHY2014NL097627

PATIENT
  Age: 71 Year
  Sex: Male
  Weight: 60 kg

DRUGS (7)
  1. SALBUTAMOL W/IPRATROPIUM [Concomitant]
     Active Substance: ALBUTEROL\IPRATROPIUM
     Dosage: 1 DF, UNK
     Route: 055
  2. MULTI-VIT [Concomitant]
     Active Substance: VITAMINS
     Dosage: 1 DF, QD
     Route: 048
  3. OLANZAPINE. [Suspect]
     Active Substance: OLANZAPINE
     Indication: RESTLESSNESS
     Dosage: 1 DF, QD (1 KEER PER DAG 1 STUK(S))
     Route: 048
     Dates: start: 201402, end: 20140728
  4. THIAMINE ^ANGELINI^ [Concomitant]
     Dosage: 1 ML, QD (1DD1)
     Route: 030
  5. FITOMENADION [Concomitant]
     Dosage: 1 ML, QD
     Route: 065
  6. NADROPARIN//NADROPARIN CALCIUM [Concomitant]
     Dosage: 0.3 ML, QD (1DD0,3ML)
     Route: 065
  7. ESOMEPRAZOL//ESOMEPRAZOLE [Concomitant]
     Dosage: 40 MG, QD
     Route: 048

REACTIONS (1)
  - Catatonia [Recovering/Resolving]

NARRATIVE: CASE EVENT DATE: 20140328
